FAERS Safety Report 24790860 (Version 1)
Quarter: 2024Q4

REPORT INFORMATION
  Report Type: Report from Study
  Country: FR (occurrence: FR)
  Receive Date: 20241230
  Receipt Date: 20241230
  Transmission Date: 20250115
  Serious: Yes (Hospitalization, Other)
  Sender: VERITY PHARMACEUTICALS INC.
  Company Number: FR-VER-202400020

PATIENT
  Age: 71 Year
  Sex: Male

DRUGS (1)
  1. TRIPTORELIN [Suspect]
     Active Substance: TRIPTORELIN
     Indication: Prostate cancer
     Dosage: POWDER AND SOLVENT FOR SUSPENSION FOR INJECTION
     Route: 058
     Dates: start: 202106

REACTIONS (3)
  - Pneumonia aspiration [Recovered/Resolved]
  - Incorrect route of product administration [Unknown]
  - Renal failure [Recovered/Resolved]

NARRATIVE: CASE EVENT DATE: 20210601
